FAERS Safety Report 9644537 (Version 2)
Quarter: 2013Q4

REPORT INFORMATION
  Report Type: Report from Study
  Country: GB (occurrence: GB)
  Receive Date: 20131025
  Receipt Date: 20131211
  Transmission Date: 20140711
  Serious: No
  Sender: FDA-Public Use
  Company Number: GB-JNJFOC-20131014467

PATIENT
  Age: 58 Year
  Sex: Female

DRUGS (6)
  1. XARELTO [Suspect]
     Indication: CEREBROVASCULAR ACCIDENT PROPHYLAXIS
     Route: 048
  2. XARELTO [Suspect]
     Indication: ATRIAL FIBRILLATION
     Route: 048
  3. LANSOPRAZOLE [Concomitant]
     Route: 065
     Dates: start: 20130102
  4. BUDESONIDE [Concomitant]
     Route: 055
     Dates: start: 2011
  5. LEVOTHYROXINE [Concomitant]
     Route: 065
  6. SIMVASTATIN [Concomitant]
     Route: 065
     Dates: start: 2011

REACTIONS (2)
  - Nausea [Recovered/Resolved]
  - Vomiting [Recovered/Resolved]
